FAERS Safety Report 19180528 (Version 1)
Quarter: 2021Q2

REPORT INFORMATION
  Report Type: Spontaneous
  Country: GB (occurrence: GB)
  Receive Date: 20210426
  Receipt Date: 20210426
  Transmission Date: 20210717
  Serious: Yes (Other)
  Sender: FDA-Public Use
  Company Number: GB-BAYER-2021-116293

PATIENT
  Age: 33 Year
  Sex: Female

DRUGS (1)
  1. MIRENA [Suspect]
     Active Substance: LEVONORGESTREL
     Indication: CONTRACEPTION
     Dosage: 20 ?G PER DAY, CONTINUOUSLY
     Route: 015
     Dates: start: 20090723, end: 20200517

REACTIONS (7)
  - Pregnancy with contraceptive device [None]
  - Retained products of conception [Unknown]
  - Drug ineffective [None]
  - Suprapubic pain [Unknown]
  - Genital haemorrhage [Unknown]
  - Dyspareunia [Unknown]
  - Abortion spontaneous [None]

NARRATIVE: CASE EVENT DATE: 20100517
